FAERS Safety Report 18503678 (Version 2)
Quarter: 2020Q4

REPORT INFORMATION
  Report Type: Report from Study
  Country: US (occurrence: US)
  Receive Date: 20201114
  Receipt Date: 20201119
  Transmission Date: 20210114
  Serious: Yes (Hospitalization)
  Sender: FDA-Public Use
  Company Number: US-AMGEN-USACT2020184774

PATIENT
  Age: 29 Year
  Sex: Male
  Weight: 87.2 kg

DRUGS (10)
  1. ACYCLOVIR [ACICLOVIR] [Concomitant]
     Active Substance: ACYCLOVIR
     Dosage: 400 MILLIGRAM
     Route: 048
     Dates: start: 2018
  2. CHOLECALCIFEROL [Concomitant]
     Active Substance: CHOLECALCIFEROL
     Dosage: 2000 UNK
     Route: 048
     Dates: start: 2018
  3. BIOTENE ORAL BALANCE [Concomitant]
     Active Substance: DEVICE\XYLITOL
     Dosage: 15 MILLILITER
     Route: 048
     Dates: start: 20201001
  4. ZOLPIDEM [Concomitant]
     Active Substance: ZOLPIDEM TARTRATE
     Dosage: 5 MILLIGRAM
     Route: 048
     Dates: start: 2018
  5. SULFADIMIDINE;TRIMETHOPRIM [Concomitant]
     Dosage: 160 MILLIGRAM
     Route: 048
     Dates: start: 20201001
  6. DEXAMETHASONE. [Concomitant]
     Active Substance: DEXAMETHASONE
     Dosage: 8-20 MILLIGRAM
     Dates: start: 20200925, end: 20201002
  7. ONDANSETRON [Concomitant]
     Active Substance: ONDANSETRON
     Dosage: 8 MILLIGRAM
     Route: 048
     Dates: start: 20201001
  8. BLINATUMOMAB [Suspect]
     Active Substance: BLINATUMOMAB
     Indication: ACUTE LYMPHOCYTIC LEUKAEMIA
     Dosage: 9 MICROGRAM
     Route: 042
     Dates: start: 20201002
  9. FAMOTIDINE. [Concomitant]
     Active Substance: FAMOTIDINE
     Dosage: 8 MILLIGRAM
     Route: 048
     Dates: start: 20200925
  10. RASBURICASE [Concomitant]
     Active Substance: RASBURICASE
     Dosage: 6 MILLIGRAM
     Route: 042
     Dates: start: 20200925, end: 20200925

REACTIONS (1)
  - Lymphocyte count decreased [Recovered/Resolved]

NARRATIVE: CASE EVENT DATE: 20201003
